FAERS Safety Report 6409191-4 (Version None)
Quarter: 2009Q4

REPORT INFORMATION
  Report Type: 
  Country: None (occurrence: None)
  Receive Date: 20091021
  Receipt Date: 20091009
  Transmission Date: 20100525
  Serious: Yes (Hospitalization)
  Sender: FDA-Public Use
  Company Number: PHEH2009US10811

PATIENT
  Sex: Male

DRUGS (22)
  1. EXJADE [Suspect]
     Indication: MYELODYSPLASTIC SYNDROME
     Dosage: 500 MG, DAILY
     Route: 048
     Dates: start: 20081114
  2. WARFARIN SODIUM [Concomitant]
     Dosage: 5 MG, QD
     Route: 048
     Dates: start: 20090630
  3. COMPAZINE [Concomitant]
     Indication: NAUSEA
     Dosage: 10 MG, Q6H PRN
     Route: 048
     Dates: start: 20090501
  4. CALCIUM CARBONATE W/VITAMIN D NOS [Concomitant]
     Dosage: TWO 600MG/400MG TABS,BID
     Route: 048
     Dates: start: 20071130
  5. MAGNESIUM [Concomitant]
     Dosage: 400 MG, QD
     Route: 048
     Dates: start: 20080812
  6. ALLOPURINOL [Concomitant]
     Dosage: 100 MG, QD
     Route: 048
     Dates: start: 20080812
  7. DOCUSATE SODIUM [Concomitant]
     Dosage: 250 MG, QHS PRN
     Route: 048
     Dates: start: 20090407
  8. DEXAMETHASONE 0.5MG TAB [Concomitant]
     Dosage: 4 MG, BID
     Route: 048
     Dates: start: 20081229
  9. ONDANSETRON HYDROCHLORIDE [Concomitant]
     Dosage: 8 MG, PRIOR TO CHEMO TREATMENT
     Route: 048
     Dates: start: 20081229
  10. CLOTRIMAZOLE [Concomitant]
     Dosage: 10 MG, UNK
     Dates: start: 20081114
  11. METAMUCIL [Concomitant]
     Dosage: 1 PACKET, QD
     Dates: start: 20080812
  12. FLONASE [Concomitant]
     Dosage: 50 MCG, BID
     Route: 045
     Dates: start: 20080812
  13. TYLENOL (CAPLET) [Concomitant]
     Dosage: 500 MG, PRN
     Dates: start: 20080812
  14. ROCALTROL [Concomitant]
     Dosage: 0.25 MCG, QD
     Route: 048
     Dates: start: 20080812
  15. PLENDIL [Concomitant]
     Dosage: 5 MG, QD
     Route: 048
     Dates: start: 20080812
  16. PREDNISONE [Concomitant]
     Dosage: TAPER
     Dates: start: 20080724
  17. ALTACE [Concomitant]
     Dosage: 2.5 MG, BID
     Route: 048
     Dates: start: 20061204
  18. CHROMAGEN [Concomitant]
     Dosage: UNK
     Route: 048
     Dates: start: 20061013
  19. PRILOSEC [Concomitant]
     Dosage: 20 MG, QD
     Route: 048
     Dates: start: 20061013
  20. LOPRESSOR HCT [Concomitant]
     Dosage: 50MG/25MG, QD
     Route: 048
     Dates: start: 20061013
  21. ZOLOFT [Concomitant]
     Dosage: HALF 50 MG TABLET, QD
     Route: 048
     Dates: start: 20061013
  22. ADVIL [Concomitant]
     Dosage: 200 MG, UNK
     Dates: start: 20061013

REACTIONS (1)
  - DYSSTASIA [None]
